FAERS Safety Report 18406909 (Version 2)
Quarter: 2020Q4

REPORT INFORMATION
  Report Type: Spontaneous
  Country: JP (occurrence: JP)
  Receive Date: 20201020
  Receipt Date: 20201112
  Transmission Date: 20210114
  Serious: Yes (Death, Other)
  Sender: FDA-Public Use
  Company Number: JP-ABBVIE-20P-087-3615738-00

PATIENT
  Age: 94 Year
  Sex: Male

DRUGS (2)
  1. LEUPLIN [Suspect]
     Active Substance: LEUPROLIDE ACETATE
     Indication: PROSTATE CANCER
     Dosage: 3.75 MILLIGRAM, Q4WEEKS
     Route: 058
  2. LEUPLIN [Suspect]
     Active Substance: LEUPROLIDE ACETATE
     Dosage: 3.75 MILLIGRAM, Q4WEEKS
     Route: 058
     Dates: start: 202003, end: 20200816

REACTIONS (2)
  - Prostate cancer [Fatal]
  - General physical health deterioration [Unknown]

NARRATIVE: CASE EVENT DATE: 202010
